FAERS Safety Report 23625673 (Version 2)
Quarter: 2024Q1

REPORT INFORMATION
  Report Type: Spontaneous
  Country: US (occurrence: None)
  Receive Date: 20240313
  Receipt Date: 20240315
  Transmission Date: 20240410
  Serious: Yes (Other)
  Sender: FDA-Public Use
  Company Number: 2024A055207

PATIENT
  Age: 65 Year
  Sex: Female
  Weight: 98 kg

DRUGS (2)
  1. TAGRISSO [Suspect]
     Active Substance: OSIMERTINIB
     Indication: Lung neoplasm malignant
     Dosage: 80.0MG UNKNOWN
     Route: 048
     Dates: start: 20180225
  2. LUNESTA [Concomitant]
     Active Substance: ESZOPICLONE
     Dosage: 1.0MG UNKNOWN
     Dates: start: 20240102

REACTIONS (8)
  - Keratitis [Unknown]
  - Blindness [Unknown]
  - Visual impairment [Unknown]
  - Diplopia [Unknown]
  - Corneal disorder [Unknown]
  - Meibomian gland dysfunction [Unknown]
  - Dry eye [Unknown]
  - Ocular hyperaemia [Unknown]

NARRATIVE: CASE EVENT DATE: 20221101
